FAERS Safety Report 23549153 (Version 1)
Quarter: 2024Q1

REPORT INFORMATION
  Report Type: Spontaneous
  Country: US (occurrence: US)
  Receive Date: 20240221
  Receipt Date: 20240221
  Transmission Date: 20240409
  Serious: No
  Sender: FDA-Public Use
  Company Number: US-PFIZER INC-202400045492

PATIENT
  Age: 59 Year
  Sex: Female

DRUGS (11)
  1. IBRANCE [Suspect]
     Active Substance: PALBOCICLIB
     Dosage: 1 TABLET 1 TIME A DAY ON DAYS 1 TO 21 OF A 28 DAY CYCLE
     Route: 048
     Dates: start: 201901, end: 202401
  2. TRAMADOL HCL [Concomitant]
     Active Substance: TRAMADOL HYDROCHLORIDE
  3. PANTOPRAZOLE SODIUM [Concomitant]
     Active Substance: PANTOPRAZOLE SODIUM
  4. LETROZOLE [Concomitant]
     Active Substance: LETROZOLE
  5. AMLODIPINE BESYLATE\OLMESARTAN MEDOXOMIL [Concomitant]
     Active Substance: AMLODIPINE BESYLATE\OLMESARTAN MEDOXOMIL
  6. LEVOTHYROXINE SODIUM [Concomitant]
     Active Substance: LEVOTHYROXINE SODIUM
  7. FOLIC ACID [Concomitant]
     Active Substance: FOLIC ACID
  8. MELOXICAM [Concomitant]
     Active Substance: MELOXICAM
  9. PREDNISONE [Concomitant]
     Active Substance: PREDNISONE
  10. CEPHALEXIN [Concomitant]
     Active Substance: CEPHALEXIN
  11. CEFUROXIME [Concomitant]
     Active Substance: CEFUROXIME

REACTIONS (3)
  - COVID-19 [Not Recovered/Not Resolved]
  - Urinary tract infection [Not Recovered/Not Resolved]
  - Upper respiratory tract infection [Not Recovered/Not Resolved]
